FAERS Safety Report 5158833-2 (Version None)
Quarter: 2006Q4

REPORT INFORMATION
  Report Type: 
  Country: None (occurrence: None)
  Receive Date: 20061114
  Receipt Date: 20061027
  Transmission Date: 20070319
  Serious: Yes (Other)
  Sender: FDA-Public Use
  Company Number: WAES 0610GBR00530

PATIENT
  Age: 58 Year
  Sex: Male

DRUGS (3)
  1. DECADRON [Suspect]
     Indication: LEUKAEMIA PLASMACYTIC
     Dosage: 40 MG/UNK;
  2. ADRIAMYCIN PFS [Suspect]
     Indication: LEUKAEMIA PLASMACYTIC
     Dosage: 9MG/M(2); UNK
  3. VELCADE [Suspect]
     Indication: LEUKAEMIA PLASMACYTIC
     Dosage: 1.30 MG / M(2)

REACTIONS (1)
  - HERPES ZOSTER DISSEMINATED [None]
